FAERS Safety Report 7262790-2 (Version None)
Quarter: 2011Q1

REPORT INFORMATION
  Report Type: 
  Country: None (occurrence: None)
  Receive Date: 20110130
  Receipt Date: 20101012
  Transmission Date: 20110831
  Serious: No
  Sender: FDA-Public Use
  Company Number: US-ABBOTT-10P-163-0667547-00

PATIENT
  Age: 53 Year
  Sex: Female

DRUGS (10)
  1. ZOLOFT [Concomitant]
     Indication: DEPRESSION
  2. SYNTHROID [Concomitant]
     Indication: HYPOTHYROIDISM
  3. WELCHOL [Concomitant]
     Indication: LIVER DISORDER
  4. HUMIRA [Suspect]
     Indication: CROHN'S DISEASE
     Dates: start: 20100801, end: 20100801
  5. HUMIRA [Suspect]
     Dates: start: 20100801
  6. IMODIUM [Concomitant]
     Indication: PRODUCT USED FOR UNKNOWN INDICATION
  7. VALTREX [Concomitant]
     Indication: RASH
  8. ENTOCORT EC [Concomitant]
     Indication: CROHN'S DISEASE
  9. VALTREX [Concomitant]
     Indication: PROPHYLAXIS
  10. ELAVIL [Concomitant]
     Indication: COLON OPERATION

REACTIONS (5)
  - INJECTION SITE URTICARIA [None]
  - RASH PRURITIC [None]
  - INJECTION SITE WARMTH [None]
  - INJECTION SITE PAIN [None]
  - INJECTION SITE RASH [None]
